FAERS Safety Report 23052086 (Version 1)
Quarter: 2023Q4

REPORT INFORMATION
  Report Type: Spontaneous
  Country: FR (occurrence: FR)
  Receive Date: 20231010
  Receipt Date: 20231010
  Transmission Date: 20240110
  Serious: Yes (Hospitalization)
  Sender: FDA-Public Use
  Company Number: None

PATIENT
  Age: 53 Year
  Sex: Male
  Weight: 58 kg

DRUGS (15)
  1. CELLCEPT [Suspect]
     Active Substance: MYCOPHENOLATE MOFETIL
     Indication: Heart transplant
     Route: 065
     Dates: start: 20230619
  2. NEORAL [Suspect]
     Active Substance: CYCLOSPORINE
     Indication: Heart transplant
     Dosage: 160 MG-0-175 MG
     Route: 065
     Dates: start: 20230619, end: 20230822
  3. ACETAMINOPHEN [Concomitant]
     Active Substance: ACETAMINOPHEN
     Indication: Pain
  4. CHOLECALCIFEROL [Concomitant]
     Active Substance: CHOLECALCIFEROL
     Indication: Vitamin supplementation
  5. KARDEGIC [Concomitant]
     Active Substance: ASPIRIN DL-LYSINE
     Indication: Cardiovascular event prophylaxis
  6. PREDNISOLONE [Concomitant]
     Active Substance: PREDNISOLONE
     Indication: Heart transplant
  7. PANTOPRAZOLE [Concomitant]
     Active Substance: PANTOPRAZOLE
     Indication: Gastrooesophageal reflux prophylaxis
  8. MELATONIN [Concomitant]
     Active Substance: MELATONIN
     Indication: Sleep disorder
  9. ZOPICLONE [Concomitant]
     Active Substance: ZOPICLONE
     Indication: Sleep disorder
  10. FOLIC ACID [Concomitant]
     Active Substance: FOLIC ACID
     Indication: Vitamin supplementation
  11. NICOTINE [Concomitant]
     Active Substance: NICOTINE
     Indication: Nicotine dependence
  12. RAMIPRIL [Concomitant]
     Active Substance: RAMIPRIL
     Indication: Heart transplant
  13. VALGANCICLOVIR [Concomitant]
     Active Substance: VALGANCICLOVIR
     Indication: Opportunistic infection prophylaxis
  14. PRAVASTATIN SODIUM [Concomitant]
     Active Substance: PRAVASTATIN SODIUM
     Indication: Heart transplant
  15. FUROSEMIDE [Concomitant]
     Active Substance: FUROSEMIDE
     Indication: Heart transplant

REACTIONS (3)
  - Gastroenteritis Escherichia coli [Recovered/Resolved]
  - Posterior reversible encephalopathy syndrome [Recovering/Resolving]
  - Haemolytic uraemic syndrome [Recovered/Resolved]

NARRATIVE: CASE EVENT DATE: 20230724
